FAERS Safety Report 10469723 (Version 3)
Quarter: 2015Q2

REPORT INFORMATION
  Report Type: Spontaneous
  Country: US (occurrence: US)
  Receive Date: 20140923
  Receipt Date: 20150409
  Transmission Date: 20150821
  Serious: Yes (Death, Hospitalization, Other)
  Sender: FDA-Public Use
  Company Number: US-BAYER-2014-123552

PATIENT
  Age: 79 Year
  Sex: Male
  Weight: 78.55 kg

DRUGS (14)
  1. XOFIGO [Suspect]
     Active Substance: RADIUM RA-223 DICHLORIDE
     Indication: PROSTATE CANCER METASTATIC
     Dosage: UNK
     Route: 042
     Dates: start: 20140617, end: 20140617
  2. NOVOLOG [Concomitant]
     Active Substance: INSULIN ASPART
     Dosage: 100 U, TID
  3. XGEVA [Concomitant]
     Active Substance: DENOSUMAB
  4. XOFIGO [Suspect]
     Active Substance: RADIUM RA-223 DICHLORIDE
     Indication: PROSTATE CANCER METASTATIC
     Dosage: UNK
     Route: 042
     Dates: start: 20140218, end: 20140218
  5. XOFIGO [Suspect]
     Active Substance: RADIUM RA-223 DICHLORIDE
     Indication: METASTASES TO BONE
     Dosage: UNK
     Route: 042
     Dates: start: 20140318, end: 20140318
  6. GABAPENTIN. [Concomitant]
     Active Substance: GABAPENTIN
     Dosage: 300 MG
  7. DIOVAN [Concomitant]
     Active Substance: VALSARTAN
     Dosage: 80 MG QD
  8. XOFIGO [Suspect]
     Active Substance: RADIUM RA-223 DICHLORIDE
     Indication: PROSTATE CANCER METASTATIC
     Dosage: UNK
     Route: 042
     Dates: start: 20140513, end: 20140513
  9. ZYTIGA [Concomitant]
     Active Substance: ABIRATERONE ACETATE
     Dosage: 250 MG, QD
  10. XOFIGO [Suspect]
     Active Substance: RADIUM RA-223 DICHLORIDE
     Indication: PROSTATE CANCER METASTATIC
     Dosage: UNK
     Route: 042
     Dates: start: 20140415, end: 20140415
  11. XOFIGO [Suspect]
     Active Substance: RADIUM RA-223 DICHLORIDE
     Indication: PROSTATE CANCER METASTATIC
     Dosage: UNK
     Route: 042
     Dates: start: 20140717, end: 20140717
  12. MEGESTROL ACETATE. [Concomitant]
     Active Substance: MEGESTROL ACETATE
  13. MORPHINE SULFATE. [Concomitant]
     Active Substance: MORPHINE SULFATE
  14. PREDNISOLONE. [Concomitant]
     Active Substance: PREDNISOLONE

REACTIONS (5)
  - Death [Fatal]
  - Enterococcal sepsis [Recovered/Resolved]
  - Enterovesical fistula [None]
  - Pruritus [None]
  - Prostatic specific antigen increased [None]

NARRATIVE: CASE EVENT DATE: 2014
